FAERS Safety Report 6553954-1 (Version None)
Quarter: 2010Q1

REPORT INFORMATION
  Report Type: 
  Country: None (occurrence: None)
  Receive Date: 20100127
  Receipt Date: 20100119
  Transmission Date: 20100710
  Serious: Yes (Hospitalization)
  Sender: FDA-Public Use
  Company Number: FR-PFIZER INC-2010006769

PATIENT
  Age: 71 Year
  Sex: Male

DRUGS (9)
  1. TAHOR [Suspect]
     Indication: CARDIAC FAILURE
     Dosage: 10 MG, 1X/DAY
     Route: 048
  2. CARDENSIEL [Concomitant]
  3. PLAVIX [Concomitant]
  4. LASILIX [Concomitant]
  5. LEVOTHYROXINE SODIUM [Concomitant]
  6. COMBIVENT [Concomitant]
  7. NEXIUM [Concomitant]
  8. CALCIPARINE [Concomitant]
  9. IMOVANE [Concomitant]

REACTIONS (1)
  - LIVER INJURY [None]
